FAERS Safety Report 5456320-5 (Version None)
Quarter: 2007Q3

REPORT INFORMATION
  Report Type: 
  Country: None (occurrence: None)
  Receive Date: 20070918
  Receipt Date: 20070907
  Transmission Date: 20080115
  Serious: Yes (Other)
  Sender: FDA-Public Use
  Company Number: GB-GILEAD-2007-0013304

PATIENT
  Sex: Male
  Weight: 1.92 kg

DRUGS (7)
  1. TRUVADA [Suspect]
     Indication: HIV INFECTION
     Route: 064
     Dates: start: 20060424, end: 20070301
  2. SUSTIVA [Suspect]
     Indication: ACQUIRED IMMUNODEFICIENCY SYNDROME
     Route: 064
     Dates: start: 20040716
  3. COMBIVIR [Concomitant]
     Indication: HIV INFECTION
     Route: 064
     Dates: start: 20070301, end: 20070625
  4. INDAPAMIDE [Concomitant]
     Indication: HYPERTENSION
     Route: 064
     Dates: start: 20061003, end: 20061010
  5. LABETALOL HCL [Concomitant]
     Route: 064
     Dates: start: 20061211, end: 20070301
  6. METHYLDOPA [Concomitant]
     Route: 064
     Dates: start: 20070301
  7. PERINDOPRIL ERBUMINE [Concomitant]
     Indication: HYPERTENSION
     Route: 064
     Dates: start: 20060214, end: 20061211

REACTIONS (2)
  - FOETAL GROWTH RETARDATION [None]
  - SMALL FOR DATES BABY [None]
